FAERS Safety Report 26077356 (Version 1)
Quarter: 2025Q4

REPORT INFORMATION
  Report Type: Spontaneous
  Country: US (occurrence: US)
  Receive Date: 20251121
  Receipt Date: 20251121
  Transmission Date: 20260118
  Serious: No
  Sender: NOVO NORDISK
  Company Number: US-NOVOPROD-1398308

PATIENT
  Sex: Female

DRUGS (1)
  1. TRESIBA [Suspect]
     Active Substance: INSULIN DEGLUDEC
     Indication: Type 2 diabetes mellitus
     Dosage: 20 TWICE DAILY
     Route: 058

REACTIONS (4)
  - Fall [Recovering/Resolving]
  - Contusion [Recovering/Resolving]
  - Dizziness [Recovering/Resolving]
  - Blood glucose increased [Recovering/Resolving]
